FAERS Safety Report 6980280-9 (Version None)
Quarter: 2010Q3

REPORT INFORMATION
  Report Type: 
  Country: None (occurrence: None)
  Receive Date: 20100908
  Receipt Date: 20100825
  Transmission Date: 20110219
  Serious: Yes (Hospitalization)
  Sender: FDA-Public Use
  Company Number: 010634

PATIENT
  Age: 73 Year
  Sex: Female

DRUGS (8)
  1. PLETAL [Suspect]
     Indication: ARTERIOSCLEROSIS OBLITERANS
     Dosage: 100 MG, BID, ORL
     Route: 048
     Dates: start: 20090902, end: 20100530
  2. BUFFERIN [Suspect]
     Dosage: 330 MG, QD, ORAL
     Route: 048
     Dates: start: 20100310, end: 20100526
  3. LIPITOR [Concomitant]
  4. ATELEC (CILNIDIPINE) TABLET [Concomitant]
  5. CELOOP (TEPRENONE) CAPSULE [Concomitant]
  6. U-PAN (LORAZEPAM) TABLET [Concomitant]
  7. MINZAIN (TRIAZOLAM) TABLET [Concomitant]
  8. JZOLOFT (SERTRALINE HYDROCHLORIDE) TABLET [Concomitant]

REACTIONS (4)
  - CONDITION AGGRAVATED [None]
  - DIZZINESS POSTURAL [None]
  - HYPERTENSION [None]
  - SUBARACHNOID HAEMORRHAGE [None]
